FAERS Safety Report 6532778-5 (Version None)
Quarter: 2010Q1

REPORT INFORMATION
  Report Type: 
  Country: None (occurrence: None)
  Receive Date: 20100111
  Receipt Date: 20100106
  Transmission Date: 20100710
  Serious: Yes (Death, Hospitalization, Other)
  Sender: FDA-Public Use
  Company Number: PHHY2010BR00793

PATIENT
  Sex: Female

DRUGS (9)
  1. CARBAMAZEPINE [Suspect]
     Indication: NERVOUS SYSTEM DISORDER
     Dosage: 200 MG, QID
     Route: 048
     Dates: start: 19700101
  2. MAREVAN [Concomitant]
     Dosage: UNK
     Route: 048
     Dates: start: 20090501
  3. STALEVO 100 [Concomitant]
     Dosage: 1 TABLET AT 8:00 A.M., 1 TABLET AT MIDDAY, 1 TABLET AT 4:00 P.M. AND 1 TABLET AT 8:00 P.M
     Dates: start: 20090801
  4. ENTACAPONE [Concomitant]
     Dosage: 1 DF, QID
  5. CARBIDOPA AND LEVODOPA [Concomitant]
     Dosage: 0.5 DF, QID
  6. QUETIAPINE FUMARATE [Concomitant]
     Dosage: UNK
     Dates: start: 20090801
  7. RIVASTIGMINE [Concomitant]
     Dosage: UNK
     Dates: start: 20090801
  8. MOTILIUM [Concomitant]
     Dosage: UNK
     Dates: start: 20090801
  9. OMEPRAZOLE [Concomitant]
     Dosage: UNK
     Dates: start: 20090801

REACTIONS (17)
  - ABASIA [None]
  - BEDRIDDEN [None]
  - CARDIOPULMONARY FAILURE [None]
  - DEHYDRATION [None]
  - DIARRHOEA [None]
  - FALL [None]
  - INNER EAR DISORDER [None]
  - MOVEMENT DISORDER [None]
  - MUSCULOSKELETAL STIFFNESS [None]
  - NEURODEGENERATIVE DISORDER [None]
  - PARKINSON'S DISEASE [None]
  - PNEUMONIA [None]
  - THROMBOSIS [None]
  - TRAUMATIC BRAIN INJURY [None]
  - TREMOR [None]
  - VERTIGO [None]
  - VOMITING [None]
